FAERS Safety Report 10109215 (Version 1)
Quarter: 2014Q2

REPORT INFORMATION
  Report Type: Spontaneous
  Country: US (occurrence: None)
  Receive Date: 20140424
  Receipt Date: 20140424
  Transmission Date: 20141212
  Serious: No
  Sender: FDA-Public Use
  Company Number: None

PATIENT
  Age: 70 Year
  Sex: Female
  Weight: 68.04 kg

DRUGS (7)
  1. TEMAZEPAM [Suspect]
     Indication: SLEEP DISORDER
     Dosage: 30 MG ONE BEDTIME BY MOUTH
     Route: 048
     Dates: start: 201401, end: 20140407
  2. VERAPAMIL SANDOZ [Concomitant]
  3. CLONIDINE HCL [Concomitant]
  4. SIMVASTATIN [Concomitant]
  5. ONE A DAY WOMEN^S VITAMIN [Concomitant]
  6. CALCIUM CITRATE + D [Concomitant]
  7. ASPIRIN [Concomitant]

REACTIONS (4)
  - Nightmare [None]
  - Nightmare [None]
  - Headache [None]
  - Anxiety [None]
